FAERS Safety Report 18671506 (Version 1)
Quarter: 2020Q4

REPORT INFORMATION
  Report Type: Report from Study
  Country: US (occurrence: US)
  Receive Date: 20201228
  Receipt Date: 20201228
  Transmission Date: 20210114
  Serious: Yes (Other)
  Sender: FDA-Public Use
  Company Number: US-PFIZER INC-2020487529

PATIENT
  Age: 49 Year
  Sex: Female

DRUGS (1)
  1. IBRANCE [Suspect]
     Active Substance: PALBOCICLIB
     Indication: BREAST CANCER FEMALE
     Dosage: 125 MG, CYCLIC [IBRANCE 125 MG DAILY FOR 21 DAYS AND OFF FOR 7 DAYS]
     Route: 048
     Dates: start: 20201118, end: 20201203

REACTIONS (3)
  - Cough [Unknown]
  - Red blood cell count decreased [Unknown]
  - White blood cell count decreased [Unknown]
